FAERS Safety Report 8717672 (Version 4)
Quarter: 2012Q4

REPORT INFORMATION
  Report Type: 
  Country: JP (occurrence: JP)
  Receive Date: 20120810
  Receipt Date: 20121127
  Transmission Date: 20130627
  Serious: Yes (Life-Threatening, Hospitalization)
  Sender: FDA-Public Use
  Company Number: JP-EISAI INC-E7389-02790-SPO-JP

PATIENT
  Sex: Female

DRUGS (19)
  1. HALAVEN [Suspect]
     Indication: BREAST CANCER
     Route: 041
     Dates: start: 20120606, end: 20120717
  2. HALAVEN [Suspect]
     Dosage: UNKNOWN
     Route: 041
     Dates: start: 20120918
  3. HALAVEN [Suspect]
     Route: 041
     Dates: start: 20120528, end: 20120528
  4. LIPITOR [Concomitant]
     Indication: HYPERLIPIDAEMIA
     Route: 048
     Dates: start: 20120517
  5. ONEALFA [Concomitant]
     Indication: OSTEOPOROSIS
     Route: 048
     Dates: end: 20120712
  6. ONEALFA [Concomitant]
     Route: 048
     Dates: start: 20120724
  7. ASPARA-CA [Concomitant]
     Indication: OSTEOPOROSIS
     Route: 048
     Dates: end: 20120724
  8. EVISTA [Concomitant]
     Indication: OSTEOPOROSIS
     Route: 048
  9. LASIX [Concomitant]
     Dosage: 20 mg initially, increasing to 30 mg and then 40 mg
     Dates: start: 20120614
  10. GASTER [Concomitant]
     Indication: PROPHYLAXIS
     Route: 048
     Dates: start: 20120614
  11. AZUNOL [Concomitant]
     Dosage: 60 g on first two days, 20 g on third day.
     Dates: start: 20120719, end: 20120721
  12. DECADRON [Concomitant]
     Route: 041
     Dates: start: 20120528
  13. ISOTONIC SODIUM CHLORIDE SOLUTION [Concomitant]
     Route: 041
     Dates: start: 20120528
  14. MAXIPIME [Concomitant]
     Route: 041
     Dates: start: 20120701
  15. GRAN [Concomitant]
     Route: 058
     Dates: start: 20120604
  16. SOLON [Concomitant]
     Route: 048
     Dates: start: 20120528, end: 20120606
  17. SOLON [Concomitant]
     Route: 048
     Dates: start: 20120507, end: 20120516
  18. LOXONIN [Concomitant]
     Route: 048
     Dates: start: 20120528, end: 20120606
  19. GENTACIN [Concomitant]
     Dosage: UNKNOWN
     Route: 048
     Dates: start: 20120615

REACTIONS (2)
  - Disseminated intravascular coagulation [Recovering/Resolving]
  - Leukopenia [Recovered/Resolved]
